FAERS Safety Report 11269634 (Version 1)
Quarter: 2015Q3

REPORT INFORMATION
  Report Type: Spontaneous
  Country: US (occurrence: US)
  Receive Date: 20150714
  Receipt Date: 20150714
  Transmission Date: 20151125
  Serious: No
  Sender: FDA-Public Use
  Company Number: US-ELI_LILLY_AND_COMPANY-US201507000281

PATIENT
  Sex: Male

DRUGS (4)
  1. HUMATROPE [Suspect]
     Active Substance: SOMATROPIN
     Indication: BLOOD GROWTH HORMONE ABNORMAL
  2. HUMATROPE [Suspect]
     Active Substance: SOMATROPIN
     Indication: ASTHENIA
  3. HUMATROPE [Suspect]
     Active Substance: SOMATROPIN
     Indication: HYPOPITUITARISM
     Dosage: 1 MG, QD
     Route: 065
     Dates: start: 2005
  4. HUMATROPE [Suspect]
     Active Substance: SOMATROPIN
     Indication: THYROID DISORDER

REACTIONS (1)
  - Underdose [Not Recovered/Not Resolved]
